FAERS Safety Report 6638489-X (Version None)
Quarter: 2010Q1

REPORT INFORMATION
  Report Type: 
  Country: None (occurrence: None)
  Receive Date: 20100316
  Receipt Date: 20100316
  Transmission Date: 20100710
  Serious: Yes (Hospitalization)
  Sender: FDA-Public Use
  Company Number: None

PATIENT
  Age: 6 Year
  Sex: Female
  Weight: 14.9687 kg

DRUGS (2)
  1. VICK'S NYQUIL CHILDREN'S VICKS [Suspect]
     Indication: COUGH
     Dosage: 10ML 1
     Dates: start: 20100308, end: 20100309
  2. VICK'S NYQUIL CHILDREN'S VICKS [Suspect]
     Indication: NASOPHARYNGITIS
     Dosage: 10ML 1
     Dates: start: 20100308, end: 20100309

REACTIONS (7)
  - ABDOMINAL PAIN UPPER [None]
  - DYSPHAGIA [None]
  - EYE SWELLING [None]
  - OEDEMA MOUTH [None]
  - PRODUCT QUALITY ISSUE [None]
  - SOMNOLENCE [None]
  - URTICARIA [None]
